FAERS Safety Report 5165659-2 (Version None)
Quarter: 2006Q4

REPORT INFORMATION
  Report Type: 
  Country: None (occurrence: None)
  Receive Date: 20061128
  Receipt Date: 20061124
  Transmission Date: 20070319
  Serious: Yes (Hospitalization)
  Sender: FDA-Public Use
  Company Number: HQWYE584212SEP06

PATIENT
  Age: 16 Year
  Sex: Female

DRUGS (1)
  1. TRIONETTA [Suspect]
     Indication: MENOMETRORRHAGIA
     Dosage: 1 TABLET 1X PER 1 DAY
     Route: 048
     Dates: start: 20060201, end: 20060406

REACTIONS (2)
  - PULMONARY EMBOLISM [None]
  - PULMONARY INFARCTION [None]
